FAERS Safety Report 4407888-9 (Version None)
Quarter: 2004Q3

REPORT INFORMATION
  Report Type: 
  Country: None (occurrence: None)
  Receive Date: 20040721
  Receipt Date: 20040709
  Transmission Date: 20050211
  Serious: Yes (Death, Hospitalization)
  Sender: FDA-Public Use
  Company Number: HQWYE999212JUL04

PATIENT
  Sex: Female

DRUGS (1)
  1. PREMPRO [Suspect]

REACTIONS (5)
  - CARDIAC DISORDER [None]
  - CERVIX CANCER METASTATIC [None]
  - COMA [None]
  - MASS [None]
  - RENAL CELL CARCINOMA STAGE UNSPECIFIED [None]
